FAERS Safety Report 9245457 (Version 2)
Quarter: 2013Q2

REPORT INFORMATION
  Report Type: Spontaneous
  Country: US (occurrence: US)
  Receive Date: 20130422
  Receipt Date: 20130425
  Transmission Date: 20140414
  Serious: Yes (Hospitalization)
  Sender: FDA-Public Use
  Company Number: US-BAYER-2013-049166

PATIENT
  Age: 81 Year
  Sex: Male
  Weight: 78.93 kg

DRUGS (11)
  1. XARELTO [Suspect]
     Indication: CEREBROVASCULAR ACCIDENT PROPHYLAXIS
     Dosage: 20 MG, QD
     Route: 048
     Dates: start: 201211, end: 20130328
  2. XARELTO [Interacting]
     Indication: ATRIAL FLUTTER
     Dosage: 20 MG, QD
     Route: 048
     Dates: start: 20130401, end: 20130409
  3. XARELTO [Interacting]
     Indication: ATRIAL FIBRILLATION
     Dosage: 20 MG, QD
     Route: 048
     Dates: start: 20130415
  4. XARELTO [Interacting]
     Indication: CEREBROVASCULAR ACCIDENT PROPHYLAXIS
  5. ACETYLSALICYLIC ACID [Interacting]
     Indication: ATRIAL FLUTTER
     Dosage: 325 MG, UNK
     Route: 065
     Dates: start: 2006
  6. ACETYLSALICYLIC ACID [Interacting]
     Indication: STENT PLACEMENT
     Dosage: 325 MG, UNK
     Route: 065
     Dates: start: 2006
  7. METOPROLOL TARTRATE [Concomitant]
     Dosage: 25 MG, UNK
     Route: 065
  8. RAMIPRIL [Concomitant]
     Dosage: 10 MG, BID
     Route: 065
  9. RANITIDINE [Concomitant]
     Indication: GASTRIC DISORDER
     Dosage: 150 MG, BID
     Route: 065
  10. METFORMIN [Concomitant]
     Dosage: 500 MG, BID
     Route: 065
  11. SIMVASTATIN [Concomitant]
     Dosage: 20 MG, UNK
     Route: 065

REACTIONS (5)
  - Post procedural haemorrhage [Recovering/Resolving]
  - Procedural haemorrhage [Recovering/Resolving]
  - Dehydration [Recovering/Resolving]
  - Haemoglobin decreased [Recovering/Resolving]
  - Haematocrit decreased [None]
